FAERS Safety Report 5519945-4 (Version None)
Quarter: 2007Q4

REPORT INFORMATION
  Report Type: 
  Country: None (occurrence: None)
  Receive Date: 20071116
  Receipt Date: 20071107
  Transmission Date: 20080405
  Serious: Yes (Other)
  Sender: FDA-Public Use
  Company Number: JP-ASTRAZENECA-2007AP06325

PATIENT
  Age: 24512 Day
  Sex: Female
  Weight: 45 kg

DRUGS (4)
  1. ARIMIDEX [Suspect]
     Indication: BREAST CANCER STAGE I
     Route: 048
     Dates: start: 20040801, end: 20071009
  2. HYTHIOL [Concomitant]
     Route: 048
     Dates: start: 20050101
  3. CINAL [Concomitant]
     Route: 048
     Dates: start: 20050101
  4. RADIOTHERAPY [Concomitant]
     Indication: RADIOTHERAPY
     Dates: start: 20020601, end: 20020701

REACTIONS (1)
  - DIABETES MELLITUS [None]
